FAERS Safety Report 8778576 (Version 1)
Quarter: 2012Q4

REPORT INFORMATION
  Report Type: 
  Country: ZA (occurrence: ZA)
  Receive Date: 20120912
  Receipt Date: 20120912
  Transmission Date: 20130627
  Serious: Yes (Other)
  Sender: FDA-Public Use
  Company Number: PHHY2012ZA078272

PATIENT
  Sex: Female

DRUGS (3)
  1. RANIHEXAL [Suspect]
     Indication: NAUSEA
     Route: 048
     Dates: start: 20120501, end: 20120510
  2. RANIHEXAL [Suspect]
     Indication: VOMITING
     Dates: start: 20120801, end: 20120810
  3. PHARMAPRESS [Concomitant]
     Indication: HYPERTENSION
     Dosage: 20 mg, UNK
     Route: 048
     Dates: start: 20100101

REACTIONS (2)
  - Hypertension [Not Recovered/Not Resolved]
  - Muscle spasms [Unknown]
